FAERS Safety Report 18071260 (Version 2)
Quarter: 2020Q3

REPORT INFORMATION
  Report Type: Spontaneous
  Country: JP (occurrence: JP)
  Receive Date: 20200727
  Receipt Date: 20200805
  Transmission Date: 20201103
  Serious: No
  Sender: FDA-Public Use
  Company Number: JP-SA-2020SA190209

PATIENT

DRUGS (4)
  1. ALPROLIX [Suspect]
     Active Substance: EFTRENONACOG ALFA
     Dosage: 50 IU/KG, QW ON SUNDAY NIGHT
     Route: 042
  2. ALPROLIX [Suspect]
     Active Substance: EFTRENONACOG ALFA
     Indication: FACTOR IX DEFICIENCY
     Dosage: 30 IU/KG, QW ON SUNDAY NIGHT
     Route: 042
     Dates: start: 201503
  3. ALPROLIX [Suspect]
     Active Substance: EFTRENONACOG ALFA
     Indication: FACTOR IX DEFICIENCY
     Dosage: 30 IU/KG, QW ON SUNDAY NIGHT
     Route: 042
     Dates: start: 201503
  4. ALPROLIX [Suspect]
     Active Substance: EFTRENONACOG ALFA
     Dosage: 50 IU/KG, QW ON SUNDAY NIGHT
     Route: 042

REACTIONS (1)
  - Traumatic haemorrhage [Recovered/Resolved]
